FAERS Safety Report 17729602 (Version 1)
Quarter: 2020Q2

REPORT INFORMATION
  Report Type: Spontaneous
  Country: US (occurrence: US)
  Receive Date: 20200430
  Receipt Date: 20200430
  Transmission Date: 20200714
  Serious: No
  Sender: FDA-Public Use
  Company Number: US-TEVA-2020-US-1229480

PATIENT
  Sex: Male

DRUGS (1)
  1. QUETIAPINE FUMARATE TEVA [Suspect]
     Active Substance: QUETIAPINE FUMARATE
     Indication: GENERALISED ANXIETY DISORDER
     Dosage: SINCE 4 YEARS
     Route: 065

REACTIONS (3)
  - Anxiety [Unknown]
  - Obsessive-compulsive disorder [Unknown]
  - Drug ineffective [Unknown]
